FAERS Safety Report 25111255 (Version 1)
Quarter: 2025Q1

REPORT INFORMATION
  Report Type: Other
  Country: FR (occurrence: FR)
  Receive Date: 20250324
  Receipt Date: 20250324
  Transmission Date: 20250409
  Serious: Yes (Other)
  Sender: ZYDUS PHARM
  Company Number: FR-EMA-DD-20250303-7482715-092810

PATIENT

DRUGS (9)
  1. TRAMADOL [Suspect]
     Active Substance: TRAMADOL
     Indication: Pain
     Route: 048
     Dates: start: 2016, end: 2017
  2. ABILIFY [Suspect]
     Active Substance: ARIPIPRAZOLE
     Indication: Bipolar disorder
     Route: 048
     Dates: start: 2017
  3. LOXAPINE [Suspect]
     Active Substance: LOXAPINE
     Indication: Psychotic disorder
     Route: 048
     Dates: start: 2016, end: 2016
  4. ZYPREXA [Suspect]
     Active Substance: OLANZAPINE
     Indication: Bipolar disorder
     Route: 048
     Dates: start: 2019, end: 2019
  5. ZYPREXA [Suspect]
     Active Substance: OLANZAPINE
     Route: 048
     Dates: start: 2019, end: 2019
  6. ZYPREXA [Suspect]
     Active Substance: OLANZAPINE
     Route: 048
     Dates: start: 2018, end: 2018
  7. ZYPREXA [Suspect]
     Active Substance: OLANZAPINE
     Route: 048
     Dates: start: 2016, end: 2017
  8. ZYPREXA [Suspect]
     Active Substance: OLANZAPINE
     Route: 048
     Dates: start: 2017, end: 2017
  9. ZYPREXA [Suspect]
     Active Substance: OLANZAPINE
     Route: 048
     Dates: start: 2017, end: 2018

REACTIONS (30)
  - Major depression [Recovered/Resolved]
  - Delirium [Unknown]
  - Job dissatisfaction [Unknown]
  - Time perception altered [Unknown]
  - Confusional state [Unknown]
  - Apathy [Unknown]
  - Tremor [Unknown]
  - Somnolence [Unknown]
  - Depressed mood [Unknown]
  - Blepharospasm [Unknown]
  - Decreased appetite [Unknown]
  - Disturbance in attention [Unknown]
  - Salivary hypersecretion [Unknown]
  - Panic attack [Unknown]
  - Swelling [Unknown]
  - Emotional poverty [Unknown]
  - Feeling abnormal [Unknown]
  - Anxiety [Unknown]
  - Sleep disorder [Unknown]
  - Ageusia [Unknown]
  - Dry skin [Unknown]
  - Anosmia [Unknown]
  - Vision blurred [Unknown]
  - Speech disorder [Unknown]
  - Mutism [Unknown]
  - Hypersensitivity [Unknown]
  - Negative thoughts [Unknown]
  - Weight increased [Unknown]
  - Amnesia [Unknown]
  - Depression [Unknown]

NARRATIVE: CASE EVENT DATE: 20160101
